FAERS Safety Report 6410973-3 (Version None)
Quarter: 2009Q4

REPORT INFORMATION
  Report Type: 
  Country: None (occurrence: None)
  Receive Date: 20091020
  Receipt Date: 20091020
  Transmission Date: 20100525
  Serious: Yes (Life-Threatening, Other)
  Sender: FDA-Public Use
  Company Number: None

PATIENT
  Age: 15 Year
  Sex: Female
  Weight: 47.6277 kg

DRUGS (5)
  1. LORATADINE [Suspect]
     Indication: HYPERSENSITIVITY
     Dosage: 10 MG 1 TB. EVERY DAY
     Dates: start: 20090605
  2. LORATADINE [Suspect]
     Indication: RHINORRHOEA
     Dosage: 10 MG 1 TB. EVERY DAY
     Dates: start: 20090605
  3. LORATADINE [Suspect]
     Indication: EYE PRURITUS
     Dosage: 10 MG 1 TB. EVERY DAY
  4. LORATADINE [Suspect]
     Indication: LACRIMATION INCREASED
     Dosage: 10 MG 1 TB. EVERY DAY
  5. LORATADINE [Suspect]
     Indication: SNEEZING
     Dosage: 10 MG 1 TB. EVERY DAY

REACTIONS (2)
  - DIZZINESS [None]
  - DRUG HYPERSENSITIVITY [None]
